FAERS Safety Report 20833804 (Version 5)
Quarter: 2022Q3

REPORT INFORMATION
  Report Type: Spontaneous
  Country: CA (occurrence: CA)
  Receive Date: 20220516
  Receipt Date: 20220922
  Transmission Date: 20221027
  Serious: Yes (Other)
  Sender: FDA-Public Use
  Company Number: CA-PFIZER INC-202101006998

PATIENT
  Age: 71 Year
  Sex: Female
  Weight: 110 kg

DRUGS (15)
  1. RUXIENCE [Suspect]
     Active Substance: RITUXIMAB-PVVR
     Indication: Rheumatoid arthritis
     Dosage: 1000 MG ON DAY 1 AND DAY 15
     Route: 042
     Dates: start: 20210129, end: 20210129
  2. RUXIENCE [Suspect]
     Active Substance: RITUXIMAB-PVVR
     Dosage: 1000 MG, ON DAY 1 AND DAY 15
     Route: 042
     Dates: start: 20210129, end: 20210212
  3. RUXIENCE [Suspect]
     Active Substance: RITUXIMAB-PVVR
     Dosage: 1000 MG ON DAY 1 AND DAY 15
     Route: 042
     Dates: start: 20210212, end: 20210212
  4. RUXIENCE [Suspect]
     Active Substance: RITUXIMAB-PVVR
     Dosage: 1000 MG, AT 0 AND 2 WEEKS, FOLLOWED BY EVERY 4 MONTHS BETWEEN THE COURSES.
     Route: 042
     Dates: start: 20210812, end: 20210812
  5. RUXIENCE [Suspect]
     Active Substance: RITUXIMAB-PVVR
     Dosage: 1000 MG ON DAY 1 AND DAY 15 (EVERY 4 MONTHS BETWEEN THE COURSES)
     Route: 042
     Dates: start: 20210826, end: 20210826
  6. RUXIENCE [Suspect]
     Active Substance: RITUXIMAB-PVVR
     Dosage: 1000 MG, ON DAY 1 AND 15
     Route: 042
     Dates: start: 20211213, end: 20211213
  7. RUXIENCE [Suspect]
     Active Substance: RITUXIMAB-PVVR
     Dosage: 1000 MG ON DAY 1 AND DAY 15 (EVERY 4 MONTHS BETWEEN THE COURSES)
     Route: 042
     Dates: start: 20211227
  8. RUXIENCE [Suspect]
     Active Substance: RITUXIMAB-PVVR
     Dosage: 1000 MG, DAY 1 AND 15
     Route: 042
     Dates: start: 20220524
  9. RUXIENCE [Suspect]
     Active Substance: RITUXIMAB-PVVR
     Dosage: 1000 MG, DAY 1 AND 15
     Route: 042
     Dates: start: 20220607
  10. AMLODIPINE [Concomitant]
     Active Substance: AMLODIPINE BESYLATE
     Dosage: 10 MG
     Route: 065
  11. CANDESARTAN [Concomitant]
     Active Substance: CANDESARTAN
     Dosage: 16 MG
     Route: 065
  12. METHOTREXATE [Concomitant]
     Active Substance: METHOTREXATE
     Dosage: 25 MG
     Route: 065
  13. METHOTREXATE [Concomitant]
     Active Substance: METHOTREXATE
     Dosage: 7.5 MG, WEEKLY
     Route: 065
  14. METHOTREXATE [Concomitant]
     Active Substance: METHOTREXATE
     Dosage: 1 DF, WEEKLY, 7.5MG
     Route: 065
  15. METOPROLOL [Concomitant]
     Active Substance: METOPROLOL
     Dosage: 25 MG
     Route: 065

REACTIONS (6)
  - Pain [Not Recovered/Not Resolved]
  - Therapeutic product effect decreased [Unknown]
  - Inappropriate schedule of product administration [Unknown]
  - Off label use [Unknown]
  - Nodule [Unknown]
  - Lacrimation increased [Unknown]

NARRATIVE: CASE EVENT DATE: 20210101
